FAERS Safety Report 8117067-X (Version None)
Quarter: 2011Q4

REPORT INFORMATION
  Report Type: 
  Country: None (occurrence: None)
  Receive Date: 20111227
  Receipt Date: 20110214
  Transmission Date: 20120403
  Serious: Yes (Other)
  Sender: FDA-Public Use
  Company Number: PHHY2011US12360

PATIENT
  Age: 83 Year
  Sex: Female

DRUGS (1)
  1. FEMARA [Suspect]
     Dosage: 2.5 MG, QD, ORAL
     Route: 048

REACTIONS (7)
  - COUGH [None]
  - DISORIENTATION [None]
  - CHILLS [None]
  - PAIN [None]
  - URINARY TRACT INFECTION [None]
  - INCONTINENCE [None]
  - PYREXIA [None]
